FAERS Safety Report 8529675-2 (Version None)
Quarter: 2012Q3

REPORT INFORMATION
  Report Type: 
  Country: None (occurrence: None)
  Receive Date: 20120723
  Receipt Date: 20120712
  Transmission Date: 20120928
  Serious: Yes (Death)
  Sender: FDA-Public Use
  Company Number: JP-BAYER-2012-048241

PATIENT
  Age: 85 Year
  Sex: Male
  Weight: 45 kg

DRUGS (3)
  1. HIRUDOID [Concomitant]
     Indication: PROPHYLAXIS
     Dosage: UNK
     Route: 061
     Dates: start: 20120404
  2. LOSARTAN POTASSIUM [Concomitant]
     Dosage: UNK
     Route: 048
  3. NEXAVAR [Suspect]
     Indication: HEPATIC NEOPLASM MALIGNANT
     Dosage: 400 MG, BID
     Route: 048
     Dates: start: 20120404, end: 20120423

REACTIONS (4)
  - DECREASED APPETITE [None]
  - DEATH [None]
  - PLATELET COUNT DECREASED [None]
  - AMYLASE INCREASED [None]
